FAERS Safety Report 4862149-9 (Version None)
Quarter: 2005Q4

REPORT INFORMATION
  Report Type: 
  Country: None (occurrence: None)
  Receive Date: 20051201
  Receipt Date: 20050813
  Transmission Date: 20060501
  Serious: No
  Sender: FDA-Public Use
  Company Number: 2005PV001178

PATIENT
  Age: 74 Year
  Sex: Female
  Weight: 72.5755 kg

DRUGS (19)
  1. BYETTA [Suspect]
     Indication: DIABETES MELLITUS NON-INSULIN-DEPENDENT
     Dosage: 10 MCG; BID; SC
     Route: 058
     Dates: start: 20050811
  2. AMARYL [Concomitant]
  3. METFORMIN [Concomitant]
  4. PREVACID [Concomitant]
  5. FLUOXETINE [Concomitant]
  6. ARTHROTEC [Concomitant]
  7. FUROSEMIDE [Concomitant]
  8. TRIAMETERENE / HCTZ [Concomitant]
  9. ASPIRIN [Concomitant]
  10. PLAVIX [Concomitant]
  11. ZETIA [Concomitant]
  12. CENTRUM SILVER [Concomitant]
  13. STOOL SOFTENER [Concomitant]
  14. ZYRTEC [Concomitant]
  15. CITRUCEL [Concomitant]
  16. CHROMAGEN [Concomitant]
  17. OXYGEN [Concomitant]
  18. ROLAIDS [Concomitant]
  19. AMARYL [Concomitant]

REACTIONS (4)
  - ABDOMINAL DISTENSION [None]
  - BLOOD GLUCOSE DECREASED [None]
  - CONDITION AGGRAVATED [None]
  - DYSPEPSIA [None]
